FAERS Safety Report 4807478-X (Version None)
Quarter: 2005Q4

REPORT INFORMATION
  Report Type: 
  Country: None (occurrence: None)
  Receive Date: 20051020
  Receipt Date: 20051004
  Transmission Date: 20060501
  Serious: Yes (Death, Congenital Anomaly)
  Sender: FDA-Public Use
  Company Number: 2005BI018964

PATIENT
  Age: 37 Year
  Sex: Male

DRUGS (1)
  1. AVONEX [Suspect]
     Indication: MULTIPLE SCLEROSIS
     Dosage: IM
     Route: 030
     Dates: start: 20040522

REACTIONS (3)
  - MULTIPLE PREGNANCY [None]
  - STILLBIRTH [None]
  - TRANSMISSION OF DRUG VIA SEMEN [None]
